FAERS Safety Report 8432088-5 (Version None)
Quarter: 2012Q2

REPORT INFORMATION
  Report Type: 
  Country: None (occurrence: None)
  Receive Date: 20120606
  Receipt Date: 20120523
  Transmission Date: 20120825
  Serious: Yes (Death)
  Sender: FDA-Public Use
  Company Number: JP-2012-15100

PATIENT
  Age: 83 Year
  Sex: Male

DRUGS (9)
  1. LASIX [Concomitant]
  2. ALLOPURINOL [Concomitant]
  3. AMIODARONE HYDROCHLORIDE (AMIODARONE HYDROCHLORIDE) TABLET [Concomitant]
  4. FLIVAS (NAFTOPIDIL) [Concomitant]
  5. SAMSCA [Suspect]
     Indication: OEDEMA
     Dosage: 15 MG MILLIGRAM(S), QD, ORAL
     Route: 048
     Dates: start: 20120418, end: 20120420
  6. ENALAPRIL MALEATE [Concomitant]
  7. GLUCOBAY [Concomitant]
  8. THYRADIN (DRIED THYROID) [Concomitant]
  9. ASPIRIN [Concomitant]

REACTIONS (6)
  - CARDIAC FAILURE CHRONIC [None]
  - PRERENAL FAILURE [None]
  - HAEMODIALYSIS [None]
  - RENAL FAILURE ACUTE [None]
  - CONDITION AGGRAVATED [None]
  - CARDIO-RESPIRATORY ARREST [None]
